FAERS Safety Report 16866450 (Version 1)
Quarter: 2019Q3

REPORT INFORMATION
  Report Type: Spontaneous
  Country: CH (occurrence: CH)
  Receive Date: 20190930
  Receipt Date: 20190930
  Transmission Date: 20191005
  Serious: Yes (Other)
  Sender: FDA-Public Use
  Company Number: CH-GLAXOSMITHKLINE-CH2019174104

PATIENT
  Age: 0 Day
  Sex: Female
  Weight: 4 kg

DRUGS (3)
  1. LAMICTAL [Suspect]
     Active Substance: LAMOTRIGINE
     Indication: GENERALISED TONIC-CLONIC SEIZURE
     Dosage: START DATE OF TREATMENT NOT KNOWN, TAKEN DURING PREGNANCY
     Route: 064
  2. DEPAKINE [Suspect]
     Active Substance: VALPROATE SODIUM
     Indication: GENERALISED TONIC-CLONIC SEIZURE
     Dosage: DEGRESSIVE DOSAGE, 500 MG / D FOR THE LAST 2 MONTHS OF PREGNANCY
     Route: 064
  3. KEPPRA [Suspect]
     Active Substance: LEVETIRACETAM
     Indication: GENERALISED TONIC-CLONIC SEIZURE
     Dosage: START DATE OF TREATMENT NOT KNOWN, TAKEN DURING PREGNANCY
     Route: 064

REACTIONS (2)
  - Cardiac murmur [Not Recovered/Not Resolved]
  - Exposure during pregnancy [Recovered/Resolved]

NARRATIVE: CASE EVENT DATE: 20190527
